FAERS Safety Report 9424496 (Version 6)
Quarter: 2014Q2

REPORT INFORMATION
  Report Type: Spontaneous
  Country: BR (occurrence: BR)
  Receive Date: 20130729
  Receipt Date: 20140520
  Transmission Date: 20141212
  Serious: Yes (Disabling, Other)
  Sender: FDA-Public Use
  Company Number: BR-ROCHE-1216733

PATIENT
  Age: 48 Year
  Sex: Male
  Weight: 74 kg

DRUGS (4)
  1. AVASTIN [Suspect]
     Indication: DIABETIC RETINOPATHY
     Dosage: 100 MG/4 ML
     Route: 047
     Dates: start: 20130410
  2. AVASTIN [Suspect]
     Route: 047
     Dates: start: 20131011
  3. METFORMIN [Concomitant]
     Indication: DIABETES MELLITUS
     Dosage: 3 TABLETS A DAY
     Route: 065
  4. CAPTOPRIL [Concomitant]
     Indication: HYPERTENSION
     Dosage: 3 TABLETS A DAY
     Route: 065

REACTIONS (9)
  - Blindness unilateral [Unknown]
  - Retinal haemorrhage [Unknown]
  - Urinary tract infection [Recovering/Resolving]
  - Abdominal pain upper [Recovered/Resolved]
  - Off label use [Unknown]
  - Therapeutic response decreased [Unknown]
  - Abnormal sensation in eye [Unknown]
  - Vision blurred [Recovered/Resolved]
  - Liquid product physical issue [Unknown]
